FAERS Safety Report 6635999-6 (Version None)
Quarter: 2010Q1

REPORT INFORMATION
  Report Type: 
  Country: None (occurrence: None)
  Receive Date: 20100309
  Receipt Date: 20100301
  Transmission Date: 20100710
  Serious: Yes (Other)
  Sender: FDA-Public Use
  Company Number: CIP10000423

PATIENT
  Sex: 0

DRUGS (3)
  1. RISEDRONATE SODIUM [Suspect]
     Indication: OSTEOPOROSIS PROPHYLAXIS
     Dosage: 35 MG ONCE WEEKLY, ORAL
     Route: 048
  2. CALCIUM (CALCIUM) [Concomitant]
  3. VITAMIN D [Concomitant]

REACTIONS (1)
  - GASTROOESOPHAGEAL REFLUX DISEASE [None]
